FAERS Safety Report 11135508 (Version 2)
Quarter: 2015Q2

REPORT INFORMATION
  Report Type: Spontaneous
  Country: FR (occurrence: None)
  Receive Date: 20150521
  Receipt Date: 20150527
  Transmission Date: 20150821
  Serious: Yes (Hospitalization, Other)
  Sender: FDA-Public Use
  Company Number: 2015-11154

PATIENT
  Age: 87 Year
  Sex: Female

DRUGS (6)
  1. FLECAINIDE [Concomitant]
     Active Substance: FLECAINIDE
  2. LEVOTHYROXINE [Concomitant]
     Active Substance: LEVOTHYROXINE
  3. EYLEA [Suspect]
     Active Substance: AFLIBERCEPT
     Indication: NEOVASCULAR AGE-RELATED MACULAR DEGENERATION
     Dosage: 2 MG, IN LEFT EYE
     Route: 031
     Dates: start: 20130930, end: 20130930
  4. FLUINDIONE (FLUINDIONE) [Suspect]
     Active Substance: FLUINDIONE
     Indication: ATRIAL FIBRILLATION
     Dates: start: 2004, end: 2004
  5. RAMIPRIL. [Concomitant]
     Active Substance: RAMIPRIL
  6. RANIBIZUMAB [Concomitant]
     Active Substance: RANIBIZUMAB

REACTIONS (4)
  - Ischaemic stroke [None]
  - Drug interaction [None]
  - International normalised ratio decreased [None]
  - Cerebral artery thrombosis [None]

NARRATIVE: CASE EVENT DATE: 201310
